FAERS Safety Report 4649723-X (Version None)
Quarter: 2005Q2

REPORT INFORMATION
  Report Type: 
  Country: None (occurrence: None)
  Receive Date: 20050428
  Receipt Date: 20050418
  Transmission Date: 20051028
  Serious: Yes (Death, Life-Threatening)
  Sender: FDA-Public Use
  Company Number: 2005AP01206

PATIENT
  Age: 79 Year
  Sex: Male

DRUGS (5)
  1. DIPRIVAN [Suspect]
     Indication: SEDATION
  2. CIPROXAN [Suspect]
     Dosage: 600 MG DAILY
     Dates: start: 20050212, end: 20050217
  3. FIRSTCIN [Suspect]
     Dosage: 2 G DAILY
     Dates: start: 20050212, end: 20050217
  4. VENOGLOBULIN-I [Suspect]
     Dosage: 5 G DAILY
     Dates: start: 20050213, end: 20050215
  5. ELASPOL [Suspect]
     Dosage: 250 MG DAILY
     Dates: start: 20050213, end: 20050217

REACTIONS (9)
  - ALANINE AMINOTRANSFERASE INCREASED [None]
  - ASPARTATE AMINOTRANSFERASE INCREASED [None]
  - BLOOD CREATINE PHOSPHOKINASE INCREASED [None]
  - CARDIAC FAILURE [None]
  - DISSEMINATED INTRAVASCULAR COAGULATION [None]
  - HEPATIC FUNCTION ABNORMAL [None]
  - MULTI-ORGAN FAILURE [None]
  - RENAL IMPAIRMENT [None]
  - SEPSIS [None]
